FAERS Safety Report 23926296 (Version 1)
Quarter: 2024Q2

REPORT INFORMATION
  Report Type: Spontaneous
  Country: US (occurrence: US)
  Receive Date: 20240531
  Receipt Date: 20240531
  Transmission Date: 20240716
  Serious: No
  Sender: FDA-Public Use
  Company Number: US-BRISTOL-MYERS SQUIBB COMPANY-2024-087224

PATIENT
  Age: 85 Year
  Sex: Female
  Weight: 45.36 kg

DRUGS (14)
  1. REVLIMID [Suspect]
     Active Substance: LENALIDOMIDE
     Indication: Plasma cell myeloma
     Dosage: 7 ON 7 OFF REPEATING 28 DAY CYCLE
     Route: 048
     Dates: start: 20240205
  2. ONDANSETRON HYDROCHLORIDE [Concomitant]
     Active Substance: ONDANSETRON HYDROCHLORIDE
  3. ACYCLOVIR [Concomitant]
     Active Substance: ACYCLOVIR
     Indication: Product used for unknown indication
  4. ATORVASTATIN [Concomitant]
     Active Substance: ATORVASTATIN
  5. TRAMADOL HCL [Concomitant]
     Active Substance: TRAMADOL HYDROCHLORIDE
  6. AMLODIPINE BESYLATE [Concomitant]
     Active Substance: AMLODIPINE BESYLATE
  7. CALCITRIOL [Concomitant]
     Active Substance: CALCITRIOL
  8. DEXAMETHASONE [Concomitant]
     Active Substance: DEXAMETHASONE
  9. SYNTHROID [Concomitant]
     Active Substance: LEVOTHYROXINE SODIUM
  10. ERYTHROMYCIN [Concomitant]
     Active Substance: ERYTHROMYCIN
  11. AMOXICILLIN [Concomitant]
     Active Substance: AMOXICILLIN
  12. SODIUM BICARBONATE [Concomitant]
     Active Substance: SODIUM BICARBONATE
  13. VITAMIN D3 [Concomitant]
     Active Substance: CHOLECALCIFEROL
  14. ICAPS AREDS FORMULA [Concomitant]
     Indication: Product used for unknown indication

REACTIONS (2)
  - Abdominal pain upper [Not Recovered/Not Resolved]
  - Off label use [Unknown]
